FAERS Safety Report 10092790 (Version 1)
Quarter: 2014Q2

REPORT INFORMATION
  Report Type: Spontaneous
  Country: US (occurrence: US)
  Receive Date: 20140421
  Receipt Date: 20140421
  Transmission Date: 20141212
  Serious: No
  Sender: FDA-Public Use
  Company Number: US-SANOFI-AVENTIS-2013SA086804

PATIENT
  Age: 66 Year
  Sex: Female
  Weight: 87.99 kg

DRUGS (6)
  1. ALLEGRA ALLERGY, 12 HR [Suspect]
     Indication: HYPERSENSITIVITY
     Route: 065
  2. LISINOPRIL [Concomitant]
     Indication: BLOOD PRESSURE
     Route: 065
  3. SIMVASTATIN [Concomitant]
     Indication: BLOOD CHOLESTEROL
     Route: 065
  4. VITAMIN B12 [Concomitant]
     Route: 065
  5. CALCIUM [Concomitant]
     Route: 065
  6. VITAMIN D [Concomitant]
     Route: 065

REACTIONS (1)
  - Somnolence [Unknown]
